FAERS Safety Report 9743029 (Version 1)
Quarter: 2013Q4

REPORT INFORMATION
  Report Type: Spontaneous
  Country: US (occurrence: US)
  Receive Date: 20131210
  Receipt Date: 20131210
  Transmission Date: 20140711
  Serious: No
  Sender: FDA-Public Use
  Company Number: US-009507513-1311USA010436

PATIENT
  Sex: Male

DRUGS (1)
  1. LOTRIMIN AF JOCK ITCH SPRAY POWDER [Suspect]
     Indication: HYPERHIDROSIS
     Dosage: UNK, UNKNOWN
     Route: 061
     Dates: start: 1998

REACTIONS (2)
  - Off label use [Unknown]
  - Product container issue [Unknown]
